FAERS Safety Report 18077771 (Version 1)
Quarter: 2020Q3

REPORT INFORMATION
  Report Type: Report from Study
  Country: None (occurrence: CA)
  Receive Date: 20200728
  Receipt Date: 20200728
  Transmission Date: 20201103
  Serious: Yes (Other)
  Sender: FDA-Public Use
  Company Number: CA-ABBVIE-20K-028-3495517-00

PATIENT
  Age: 57 Year
  Sex: Female

DRUGS (1)
  1. MAVIRET [Suspect]
     Active Substance: GLECAPREVIR\PIBRENTASVIR
     Indication: CHRONIC HEPATITIS C
     Route: 048
     Dates: start: 20200610

REACTIONS (3)
  - Apnoea [Unknown]
  - Cough [Not Recovered/Not Resolved]
  - Dysphonia [Unknown]

NARRATIVE: CASE EVENT DATE: 2020
